FAERS Safety Report 25762482 (Version 1)
Quarter: 2025Q3

REPORT INFORMATION
  Report Type: Spontaneous
  Country: EU (occurrence: EU)
  Receive Date: 20250904
  Receipt Date: 20250904
  Transmission Date: 20251021
  Serious: Yes (Other)
  Sender: MYLAN
  Company Number: EU-009507513-2321281

PATIENT
  Age: 76 Year
  Sex: Male

DRUGS (12)
  1. PACLITAXEL [Suspect]
     Active Substance: PACLITAXEL
     Indication: Squamous cell carcinoma of lung
  2. PACLITAXEL [Suspect]
     Active Substance: PACLITAXEL
     Route: 065
  3. PACLITAXEL [Suspect]
     Active Substance: PACLITAXEL
     Route: 065
  4. PACLITAXEL [Suspect]
     Active Substance: PACLITAXEL
  5. PEMBROLIZUMAB [Suspect]
     Active Substance: PEMBROLIZUMAB
     Indication: Squamous cell carcinoma of lung
  6. PEMBROLIZUMAB [Suspect]
     Active Substance: PEMBROLIZUMAB
     Route: 065
  7. PEMBROLIZUMAB [Suspect]
     Active Substance: PEMBROLIZUMAB
     Route: 065
  8. PEMBROLIZUMAB [Suspect]
     Active Substance: PEMBROLIZUMAB
  9. CARBOPLATIN [Suspect]
     Active Substance: CARBOPLATIN
     Indication: Squamous cell carcinoma of lung
  10. CARBOPLATIN [Suspect]
     Active Substance: CARBOPLATIN
     Route: 065
  11. CARBOPLATIN [Suspect]
     Active Substance: CARBOPLATIN
     Route: 065
  12. CARBOPLATIN [Suspect]
     Active Substance: CARBOPLATIN

REACTIONS (1)
  - Pulmonary toxicity [Unknown]
